FAERS Safety Report 4562956-6 (Version None)
Quarter: 2005Q1

REPORT INFORMATION
  Report Type: 
  Country: None (occurrence: None)
  Receive Date: 20050121
  Receipt Date: 20050111
  Transmission Date: 20050727
  Serious: Yes (Other)
  Sender: FDA-Public Use
  Company Number: 2004114527

PATIENT
  Sex: Female

DRUGS (1)
  1. FELDENE [Suspect]
     Indication: HEADACHE
     Dosage: 20 MG 20 MG, 1 AS NECESSARY, ORAL
     Route: 048
     Dates: start: 20041213, end: 20041214

REACTIONS (5)
  - DRUG HYPERSENSITIVITY [None]
  - FACE OEDEMA [None]
  - PRURITUS [None]
  - RASH PAPULAR [None]
  - SKIN EXFOLIATION [None]
